FAERS Safety Report 9416574 (Version 2)
Quarter: 2013Q3

REPORT INFORMATION
  Report Type: Spontaneous
  Country: FR (occurrence: None)
  Receive Date: 20130719
  Receipt Date: 20130816
  Transmission Date: 20140515
  Serious: Yes (Hospitalization)
  Sender: FDA-Public Use
  Company Number: VAL_02644_2013

PATIENT
  Age: 79 Year
  Sex: Male

DRUGS (10)
  1. CIBACEN [Suspect]
     Indication: PRODUCT USED FOR UNKNOWN INDICATION
     Route: 048
     Dates: end: 201306
  2. FUROSEMIDE [Concomitant]
  3. DIFFU-K [Concomitant]
  4. XYZALL [Concomitant]
  5. DOLOXENE COMPOUND/00113501/ [Concomitant]
  6. SERETIDE [Concomitant]
  7. VENTOLINE/0013950/ (UNKNOWN) [Concomitant]
  8. LANSOPRAZOLE [Concomitant]
  9. ZOXON /00639302/ (UNKNOWN) [Concomitant]
  10. TRIMETAZIDINE [Concomitant]

REACTIONS (5)
  - Blood pressure diastolic increased [None]
  - Angioedema [None]
  - C-reactive protein increased [None]
  - Dysarthria [None]
  - Lacrimation increased [None]
